FAERS Safety Report 5797930-5 (Version None)
Quarter: 2008Q3

REPORT INFORMATION
  Report Type: 
  Country: None (occurrence: None)
  Receive Date: 20080702
  Receipt Date: 20080618
  Transmission Date: 20090109
  Serious: Yes (Other)
  Sender: FDA-Public Use
  Company Number: GB-ELI_LILLY_AND_COMPANY-GB200806004849

PATIENT
  Age: 9 Year
  Sex: Male
  Weight: 50.5 kg

DRUGS (6)
  1. STRATTERA [Suspect]
     Indication: ATTENTION DEFICIT/HYPERACTIVITY DISORDER
     Dosage: 18 MG, UNKNOWN
     Route: 048
     Dates: start: 20070615, end: 20070828
  2. STRATTERA [Suspect]
     Dosage: 25 MG, UNKNOWN
     Route: 065
     Dates: start: 20070430
  3. STRATTERA [Suspect]
     Dosage: 40 MG, UNKNOWN
     Route: 065
     Dates: end: 20070615
  4. STRATTERA [Suspect]
     Dosage: 50 MG, UNKNOWN
     Route: 065
  5. STRATTERA [Suspect]
     Dosage: 60 MG, UNKNOWN
     Route: 065
  6. MELATONIN [Concomitant]
     Indication: SLEEP DISORDER
     Dosage: UNK, UNKNOWN
     Route: 065

REACTIONS (6)
  - ABNORMAL BEHAVIOUR [None]
  - AGITATION [None]
  - ANXIETY [None]
  - COMMUNICATION DISORDER [None]
  - EMOTIONAL DISORDER [None]
  - SUICIDAL IDEATION [None]
